FAERS Safety Report 5166453-9 (Version None)
Quarter: 2006Q4

REPORT INFORMATION
  Report Type: 
  Country: None (occurrence: None)
  Receive Date: 20061130
  Receipt Date: 20061130
  Transmission Date: 20070319
  Serious: Yes (Other)
  Sender: FDA-Public Use
  Company Number: None

PATIENT
  Age: 70 Year
  Sex: Male

DRUGS (9)
  1. INTEGRILIN [Suspect]
     Indication: ACUTE MYOCARDIAL INFARCTION
  2. HEPARIN [Suspect]
     Indication: ACUTE MYOCARDIAL INFARCTION
  3. ACCUPRIL [Concomitant]
  4. AMBIEN [Concomitant]
  5. ASPIRIN [Concomitant]
  6. LIPITOR [Concomitant]
  7. NORVASC [Concomitant]
  8. PLAVIX [Concomitant]
  9. TOPROL-XL [Concomitant]

REACTIONS (1)
  - THROMBOCYTOPENIA [None]
